FAERS Safety Report 4776296-3 (Version None)
Quarter: 2005Q3

REPORT INFORMATION
  Report Type: 
  Country: None (occurrence: None)
  Receive Date: 20050921
  Receipt Date: 20050908
  Transmission Date: 20060218
  Serious: Yes (Life-Threatening, Hospitalization)
  Sender: FDA-Public Use
  Company Number: 02100-EUR-05-0001

PATIENT
  Age: 75 Year
  Sex: Male

DRUGS (13)
  1. CILOSTAZOL [Suspect]
     Indication: FEMORAL ARTERY OCCLUSION
     Dosage: 100 MG ORAL
     Route: 048
     Dates: start: 20050723, end: 20050819
  2. CILOSTAZOL [Suspect]
     Indication: INTERMITTENT CLAUDICATION
     Dosage: 100 MG ORAL
     Route: 048
     Dates: start: 20050723, end: 20050819
  3. GTN [Concomitant]
  4. METFORMIN [Concomitant]
  5. ISOSORBIDE MONONITRATE [Concomitant]
  6. FUROSEMIDE [Concomitant]
  7. ATENOLOL [Concomitant]
  8. LERCANIDIPINE [Concomitant]
  9. ENOXAPARIN SODIUM [Concomitant]
  10. CAPTOPRIL [Concomitant]
  11. ASPIRIN [Concomitant]
  12. SIMVASTATIN [Concomitant]
  13. GLIMEPIRIDE [Concomitant]

REACTIONS (2)
  - MYOCARDIAL INFARCTION [None]
  - PULMONARY HYPERTENSION [None]
